FAERS Safety Report 6426204-4 (Version None)
Quarter: 2009Q4

REPORT INFORMATION
  Report Type: 
  Country: None (occurrence: None)
  Receive Date: 20091104
  Receipt Date: 20091028
  Transmission Date: 20100525
  Serious: Yes (Hospitalization)
  Sender: FDA-Public Use
  Company Number: FR-JNJFOC-20091008498

PATIENT
  Age: 82 Year
  Sex: Female

DRUGS (1)
  1. HALDOL DECANOAS [Suspect]
     Indication: PSYCHOTIC DISORDER
     Route: 065

REACTIONS (4)
  - DROOLING [None]
  - FALL [None]
  - FRACTURE [None]
  - TREMOR [None]
